FAERS Safety Report 18612214 (Version 1)
Quarter: 2020Q4

REPORT INFORMATION
  Report Type: Spontaneous
  Country: US (occurrence: US)
  Receive Date: 20201214
  Receipt Date: 20201214
  Transmission Date: 20210114
  Serious: No
  Sender: FDA-Public Use
  Company Number: US-BAYER-2020-267292

PATIENT
  Age: 61 Year
  Sex: Male

DRUGS (5)
  1. AUGMENTIN [Concomitant]
     Active Substance: AMOXICILLIN\CLAVULANATE POTASSIUM
  2. CLARITIN [Suspect]
     Active Substance: LORATADINE
     Indication: COVID-19
     Dosage: 1 DF, QD
     Route: 061
     Dates: start: 20201124
  3. ZINC. [Concomitant]
     Active Substance: ZINC
  4. ASCORBIC ACID. [Concomitant]
     Active Substance: ASCORBIC ACID
  5. VITAMIN D [VITAMIN D NOS] [Concomitant]
     Active Substance: VITAMIN D NOS

REACTIONS (7)
  - Off label use [None]
  - Nasal dryness [Unknown]
  - Sinus operation [None]
  - Expired product administered [None]
  - Wrong technique in product usage process [None]
  - Product use in unapproved indication [None]
  - Sinus pain [Unknown]

NARRATIVE: CASE EVENT DATE: 20201128
